FAERS Safety Report 16720740 (Version 1)
Quarter: 2019Q3

REPORT INFORMATION
  Report Type: Spontaneous
  Country: US (occurrence: US)
  Receive Date: 20190820
  Receipt Date: 20190820
  Transmission Date: 20191005
  Serious: Yes (Death, Hospitalization)
  Sender: FDA-Public Use
  Company Number: US-PFIZER INC-2019351113

PATIENT
  Age: 73 Year
  Sex: Female

DRUGS (3)
  1. DOXORUBICIN HCL [Suspect]
     Active Substance: DOXORUBICIN HYDROCHLORIDE
     Dosage: 300 MG, UNK
     Dates: end: 20060123
  2. CYCLOPHOSPHAMIDE. [Suspect]
     Active Substance: CYCLOPHOSPHAMIDE
     Dosage: 3000 MG, UNK
     Dates: end: 20060123
  3. DOCETAXEL. [Suspect]
     Active Substance: DOCETAXEL
     Dosage: 375 MG, UNK
     Dates: end: 20060123

REACTIONS (8)
  - Pulmonary embolism [Fatal]
  - Polycythaemia [Fatal]
  - Second primary malignancy [Fatal]
  - Acute myeloid leukaemia [Fatal]
  - Clostridium difficile colitis [Fatal]
  - Erythema nodosum [Fatal]
  - Thrombocytopenia [Fatal]
  - Febrile neutropenia [Fatal]

NARRATIVE: CASE EVENT DATE: 20101129
